FAERS Safety Report 6042367-7 (Version None)
Quarter: 2009Q1

REPORT INFORMATION
  Report Type: 
  Country: None (occurrence: None)
  Receive Date: 20090116
  Receipt Date: 20090115
  Transmission Date: 20090719
  Serious: Yes (Death, Other)
  Sender: FDA-Public Use
  Company Number: MX-ASTRAZENECA-2008UW10340

PATIENT
  Age: 68 Year
  Sex: Female
  Weight: 50 kg

DRUGS (5)
  1. ARIMIDEX [Suspect]
     Indication: BREAST CANCER FEMALE
     Route: 048
     Dates: start: 20071001
  2. ARIMIDEX [Suspect]
     Indication: BONE NEOPLASM MALIGNANT
     Route: 048
     Dates: start: 20071001
  3. PSYLLIUM PLANTAGO [Concomitant]
     Indication: CONSTIPATION
     Route: 048
  4. PLATINUM BASED CHEMOTHERAPY [Concomitant]
     Indication: BREAST CANCER FEMALE
     Dates: start: 20070601, end: 20080301
  5. PLATINUM BASED CHEMOTHERAPY [Concomitant]
     Indication: BONE NEOPLASM MALIGNANT
     Dates: start: 20070601, end: 20080301

REACTIONS (4)
  - DEATH [None]
  - HAEMORRHOIDS [None]
  - RENAL IMPAIRMENT [None]
  - URINARY TRACT INFECTION [None]
